FAERS Safety Report 10762131 (Version 1)
Quarter: 2015Q1

REPORT INFORMATION
  Report Type: Spontaneous
  Country: US (occurrence: US)
  Receive Date: 20150204
  Receipt Date: 20150204
  Transmission Date: 20150721
  Serious: Yes (Death, Other)
  Sender: FDA-Public Use
  Company Number: US-FRI-1000074009

PATIENT
  Age: 0 Day
  Sex: Male

DRUGS (1)
  1. CELEXA [Suspect]
     Active Substance: CITALOPRAM HYDROBROMIDE
     Route: 064

REACTIONS (2)
  - Congenital anomaly [Fatal]
  - Hypoplastic left heart syndrome [Fatal]

NARRATIVE: CASE EVENT DATE: 20081219
